FAERS Safety Report 5307599-1 (Version None)
Quarter: 2007Q2

REPORT INFORMATION
  Report Type: 
  Country: None (occurrence: None)
  Receive Date: 20070425
  Receipt Date: 20070416
  Transmission Date: 20071010
  Serious: Yes (Other)
  Sender: FDA-Public Use
  Company Number: FR-PFIZER INC-2007030562

PATIENT
  Sex: Female

DRUGS (3)
  1. TRIFLUCAN [Interacting]
     Dates: start: 20070413
  2. MERCILON [Interacting]
     Indication: CONTRACEPTION
  3. BIRODOGYL [Suspect]
     Dates: start: 20070413

REACTIONS (2)
  - DRUG INTERACTION [None]
  - VAGINAL HAEMORRHAGE [None]
